FAERS Safety Report 8799735 (Version 4)
Quarter: 2015Q1

REPORT INFORMATION
  Report Type: Spontaneous
  Country: JP (occurrence: None)
  Receive Date: 20120914
  Receipt Date: 20150218
  Transmission Date: 20150721
  Serious: Yes (Other)
  Sender: FDA-Public Use
  Company Number: 2009JP006820

PATIENT
  Age: 34 Year
  Sex: Female
  Weight: 62 kg

DRUGS (25)
  1. ACTONEL (RISEDRONATE SODIUM) [Concomitant]
  2. PROSTANDIN (ALPROSTADIL ALFADEX) [Concomitant]
  3. MOHRUS (KETOPROFEN) [Concomitant]
  4. PREDONINE [Suspect]
     Active Substance: PREDNISOLONE\PREDNISOLONE ACETATE\PREDNISOLONE SODIUM SUCCINATE
     Route: 048
     Dates: end: 20080804
  5. PERSANTIN (DIPYRIDAMOLE) [Concomitant]
  6. OLMETEC (OLMESARTAN MEDOXOMIL) [Concomitant]
     Active Substance: OLMESARTAN MEDOXOMIL
  7. FERROMIA (SODIUM FERROUS CITRATE) [Concomitant]
  8. NIZORAL [Concomitant]
     Active Substance: KETOCONAZOLE
  9. FAMVIR (FAMICICLOVIR) [Concomitant]
  10. JUVELA (RETINOL, TOCOPHEROL) [Concomitant]
  11. ACINON (NIZATIDINE) [Concomitant]
  12. BAYASPIRIN (ACETYLSALICYLIC ACID) [Concomitant]
  13. JUVELA N (TOPCOPHERYL NICOTINATE) [Concomitant]
  14. RIKAVARIN (TRANEXAMIC ACID) [Concomitant]
  15. LIPITOR [Concomitant]
     Active Substance: ATORVASTATIN CALCIUM
  16. METHYLPREDNISOLONE SODIUM SUCCINATE (METHYLPREDNISOLONE SODIIUM SUCCINATE) [Concomitant]
  17. CRAVIT (LEVOFLOXACIN  HYDRATE) [Concomitant]
  18. CLARITH (CLARITHYROMYCIN) [Concomitant]
  19. MUCODYNE (CARBOCISTEINE) [Concomitant]
     Active Substance: CARBOCYSTEINE
  20. SRENDAM (SUPROFEN) [Concomitant]
  21. LOXONIN (LOXOPROFEN SODIUM HYDRATE) [Concomitant]
  22. EVOXAC (CEVIMELINE HYDROCHLORIDE) [Concomitant]
  23. PROGRAF [Suspect]
     Active Substance: TACROLIMUS\TACROLIMUS ANHYDROUS
     Indication: LUPUS NEPHRITIS
     Dosage: 3 MG, UNKNOWN/D, ORAL
     Route: 048
     Dates: start: 20080813, end: 20080819
  24. MARZULENE-S (SODIUM GUALENATE HYDRATE_L-GLUTAMINE) [Concomitant]
  25. ASTOMIN (DIMEMORFAN) [Concomitant]

REACTIONS (7)
  - Hypertension [None]
  - Hyperlipidaemia [None]
  - Upper respiratory tract inflammation [None]
  - Herpes zoster [None]
  - Anaemia [None]
  - Fungal skin infection [None]
  - Ovarian cyst [None]

NARRATIVE: CASE EVENT DATE: 20080823
